FAERS Safety Report 7804551-9 (Version None)
Quarter: 2011Q4

REPORT INFORMATION
  Report Type: 
  Country: None (occurrence: None)
  Receive Date: 20111010
  Receipt Date: 20110927
  Transmission Date: 20120403
  Serious: Yes (Other)
  Sender: FDA-Public Use
  Company Number: ES-UCBSA-042209

PATIENT
  Age: 65 Year
  Sex: Female
  Weight: 78 kg

DRUGS (7)
  1. IBUPROFEN [Concomitant]
     Indication: RHEUMATOID ARTHRITIS
     Route: 048
  2. FOLIC ACID [Concomitant]
     Indication: RHEUMATOID ARTHRITIS
     Route: 048
     Dates: start: 20050101
  3. CALCIUM/VITAMIN D [Concomitant]
     Indication: RHEUMATOID ARTHRITIS
     Dosage: DAILY DOSE: 1000 MG/800 IU
     Dates: start: 20110101
  4. CIMZIA [Suspect]
     Indication: RHEUMATOID ARTHRITIS
     Dosage: 400 MG
     Route: 058
     Dates: start: 20110715, end: 20110101
  5. RABEPRAZOL [Concomitant]
     Indication: RHEUMATOID ARTHRITIS
     Route: 048
  6. PREDNISONE [Concomitant]
     Indication: RHEUMATOID ARTHRITIS
     Route: 048
     Dates: start: 20110101
  7. METHOTREXATE [Concomitant]
     Indication: RHEUMATOID ARTHRITIS
     Route: 058
     Dates: start: 20050101, end: 20110815

REACTIONS (3)
  - APHTHOUS STOMATITIS [None]
  - HIDRADENITIS [None]
  - INTERTRIGO CANDIDA [None]
